FAERS Safety Report 18595720 (Version 1)
Quarter: 2020Q4

REPORT INFORMATION
  Report Type: Spontaneous
  Country: US (occurrence: US)
  Receive Date: 20201209
  Receipt Date: 20201209
  Transmission Date: 20210114
  Serious: Yes (Other)
  Sender: FDA-Public Use
  Company Number: US-TAKEDA-2020TUS054926

PATIENT
  Sex: Female
  Weight: 71.2 kg

DRUGS (21)
  1. DESIPRAMINE [Concomitant]
     Active Substance: DESIPRAMINE
  2. TOPIRAMATE. [Concomitant]
     Active Substance: TOPIRAMATE
  3. TRAZODONE [Concomitant]
     Active Substance: TRAZODONE HYDROCHLORIDE
  4. HYQVIA [Concomitant]
     Active Substance: HUMAN IMMUNOGLOBULIN G\HYALURONIDASE RECOMBINANT HUMAN
  5. VITAMIN D3 [Concomitant]
     Active Substance: CHOLECALCIFEROL
  6. CUVITRU [Suspect]
     Active Substance: HUMAN IMMUNOGLOBULIN G
     Indication: IMMUNODEFICIENCY COMMON VARIABLE
     Dosage: 15 GRAM, Q2WEEKS
     Route: 058
     Dates: start: 20200807
  7. ATIVAN [Concomitant]
     Active Substance: LORAZEPAM
  8. GABAPENTIN. [Concomitant]
     Active Substance: GABAPENTIN
  9. MULTIVITAMINS [VITAMINS NOS] [Concomitant]
     Active Substance: VITAMINS
  10. NORMAL SALINE [Concomitant]
     Active Substance: SODIUM CHLORIDE
  11. MIRALAX [Concomitant]
     Active Substance: POLYETHYLENE GLYCOL 3350
  12. CVS ASPIRIN [Concomitant]
     Active Substance: ASPIRIN
  13. DIPHENHYDRAMINE. [Concomitant]
     Active Substance: DIPHENHYDRAMINE
  14. EPINEPHRINE. [Concomitant]
     Active Substance: EPINEPHRINE
  15. LAMOTRIGINE. [Concomitant]
     Active Substance: LAMOTRIGINE
  16. TROMETHAMINE. [Concomitant]
     Active Substance: TROMETHAMINE
  17. REXULTI [Concomitant]
     Active Substance: BREXPIPRAZOLE
  18. ACETAMINOPHEN. [Concomitant]
     Active Substance: ACETAMINOPHEN
  19. IMITREX DF [Concomitant]
     Active Substance: SUMATRIPTAN SUCCINATE
  20. KETOROLAC [Concomitant]
     Active Substance: KETOROLAC TROMETHAMINE
  21. MAGNESIUM OXIDE. [Concomitant]
     Active Substance: MAGNESIUM OXIDE

REACTIONS (1)
  - Bunion operation [Unknown]
